FAERS Safety Report 5107006-8 (Version None)
Quarter: 2006Q3

REPORT INFORMATION
  Report Type: 
  Country: None (occurrence: None)
  Receive Date: 20060913
  Receipt Date: 20060825
  Transmission Date: 20061208
  Serious: Yes (Other)
  Sender: FDA-Public Use
  Company Number: US200604004777

PATIENT
  Age: 59 Year
  Sex: Female

DRUGS (11)
  1. CYMBALTA [Suspect]
     Indication: NEUROPATHY PERIPHERAL
     Dosage: SEE IMAGE
     Route: 048
     Dates: start: 20060212, end: 20060404
  2. CYMBALTA [Suspect]
     Indication: NEUROPATHY PERIPHERAL
     Dosage: SEE IMAGE
     Route: 048
     Dates: start: 20060421
  3. TOPROL-XL [Concomitant]
  4. COZAAR [Concomitant]
  5. HYDROCHLORZIDE (HYDROCHLOROTHIAZIDE) [Concomitant]
  6. ZOCOR [Concomitant]
  7. NEURONTIN [Concomitant]
  8. METFORMIN [Concomitant]
  9. B COMPLEX (NICOTINAMIDE, PYRIDOXINE HYDROCHLORIDE, RIBOFLAVIN, THIAMIN [Concomitant]
  10. CALCIUM CARBONATE (CALCIUM CARBONATE) [Concomitant]
  11. FLONASE [Concomitant]

REACTIONS (2)
  - ALANINE AMINOTRANSFERASE INCREASED [None]
  - ASPARTATE AMINOTRANSFERASE INCREASED [None]
